FAERS Safety Report 6711331-4 (Version None)
Quarter: 2010Q2

REPORT INFORMATION
  Report Type: 
  Country: None (occurrence: None)
  Receive Date: 20100505
  Receipt Date: 20100426
  Transmission Date: 20101027
  Serious: Yes (Hospitalization)
  Sender: FDA-Public Use
  Company Number: US-ASTRAZENECA-2010SE18682

PATIENT
  Age: 25863 Day
  Sex: Female
  Weight: 83.9 kg

DRUGS (21)
  1. LISINOPRIL [Suspect]
     Route: 065
  2. FOSTAMATINIB DISODIUM [Suspect]
     Indication: RHEUMATOID ARTHRITIS
     Route: 048
     Dates: start: 20100409
  3. METHOTREXATE [Concomitant]
     Indication: RHEUMATOID ARTHRITIS
     Route: 048
     Dates: start: 20070808
  4. PROMETHAZINE W/ CODEINE [Concomitant]
     Indication: UPPER RESPIRATORY TRACT INFECTION
     Dosage: 6.25/10 MG AS REQUIRED
     Route: 048
     Dates: start: 20100210
  5. LEUCOVORIN CALCIUM [Concomitant]
     Indication: ALOPECIA
     Route: 048
     Dates: start: 20100308
  6. LISINOPRIL WITH HCTZ [Concomitant]
     Indication: HYPERTENSION
     Dosage: 10/12.5 MG EVERYDAY
     Route: 048
     Dates: start: 20100212
  7. PREMPRO [Concomitant]
     Indication: HOT FLUSH
     Dosage: 0.3/1.5 MG EVERYDAY
     Route: 048
     Dates: start: 20090824
  8. PRAVASTATIN [Concomitant]
     Indication: HYPERCHOLESTEROLAEMIA
     Route: 048
     Dates: start: 20081110
  9. PERCOCET [Concomitant]
     Indication: NEUROPATHY PERIPHERAL
     Route: 048
     Dates: start: 20091215
  10. LEVOTHYROXINE [Concomitant]
     Indication: HYPOTHYROIDISM
     Route: 048
     Dates: start: 20060101
  11. MULTIVITAMIN [Concomitant]
     Indication: MACULAR DEGENERATION
     Dosage: TWO TABLETS
     Route: 048
     Dates: start: 20030101
  12. GABAPENTIN [Concomitant]
     Indication: NEUROPATHY PERIPHERAL
     Route: 048
     Dates: start: 20050101
  13. FOSAMAX [Concomitant]
     Indication: OSTEOPOROSIS
     Route: 048
     Dates: start: 20050201
  14. ASPIRIN [Concomitant]
     Indication: CARDIOVASCULAR EVENT PROPHYLAXIS
     Route: 048
     Dates: start: 20060101
  15. FOLIC ACID [Concomitant]
     Indication: RHEUMATOID ARTHRITIS
     Route: 048
     Dates: start: 20080422
  16. HYDROCODONE BITARTRATE [Concomitant]
     Indication: RHEUMATOID ARTHRITIS
     Dosage: ONE TABLET AS REQUIRED
     Route: 048
     Dates: start: 20080602
  17. HYDROCODONE BITARTRATE [Concomitant]
     Indication: PAIN
     Dosage: ONE TABLET AS REQUIRED
     Route: 048
     Dates: start: 20080602
  18. CELEBREX [Concomitant]
     Indication: OSTEOARTHRITIS
     Route: 048
     Dates: start: 20040101
  19. CALCIUM [Concomitant]
     Indication: OSTEOPOROSIS
     Route: 048
     Dates: start: 20040101
  20. MULTI-VITAMIN [Concomitant]
     Indication: SUPPLEMENTATION THERAPY
     Dosage: ONE TABLET EVERYDAY
     Route: 048
     Dates: start: 19980101
  21. FOLATE [Concomitant]
     Route: 048

REACTIONS (1)
  - EPIGLOTTITIS [None]
